FAERS Safety Report 5224848-9 (Version None)
Quarter: 2007Q1

REPORT INFORMATION
  Report Type: 
  Country: None (occurrence: None)
  Receive Date: 20070126
  Receipt Date: 20070116
  Transmission Date: 20070707
  Serious: Yes (Death)
  Sender: FDA-Public Use
  Company Number: B0455043A

PATIENT
  Age: 24 Year
  Sex: Male

DRUGS (1)
  1. WELLBUTRIN XL [Suspect]
     Dosage: 300 MG / SEE DOSAGE TEXT / ORAL
     Route: 048

REACTIONS (9)
  - BLOOD PRESSURE DECREASED [None]
  - BUNDLE BRANCH BLOCK LEFT [None]
  - CARDIAC ARREST [None]
  - CONVULSION [None]
  - DRUG SCREEN POSITIVE [None]
  - HEART RATE INCREASED [None]
  - OVERDOSE [None]
  - VENTRICULAR FIBRILLATION [None]
  - VENTRICULAR TACHYCARDIA [None]
